FAERS Safety Report 12647110 (Version 1)
Quarter: 2016Q3

REPORT INFORMATION
  Report Type: Spontaneous
  Country: US (occurrence: None)
  Receive Date: 20160811
  Receipt Date: 20160811
  Transmission Date: 20161109
  Serious: No
  Sender: FDA-Public Use
  Company Number: None

PATIENT
  Age: 60 Year
  Sex: Female
  Weight: 79.38 kg

DRUGS (15)
  1. SYNTHROID [Concomitant]
     Active Substance: LEVOTHYROXINE SODIUM
  2. URSODIOL. [Concomitant]
     Active Substance: URSODIOL
  3. AMITRIPTYLINE [Concomitant]
     Active Substance: AMITRIPTYLINE
  4. PRILOSEC [Concomitant]
     Active Substance: OMEPRAZOLE MAGNESIUM
  5. CALCIUM [Concomitant]
     Active Substance: CALCIUM
  6. LYRICA [Suspect]
     Active Substance: PREGABALIN
     Indication: MUSCULOSKELETAL PAIN
     Dosage: 60 CAP TIWCE A DAY
     Route: 048
     Dates: start: 20160602
  7. FISH OIL [Concomitant]
     Active Substance: FISH OIL
  8. IRON [Concomitant]
     Active Substance: IRON
  9. TRAMADOL. [Concomitant]
     Active Substance: TRAMADOL
  10. KLONOPIN [Concomitant]
     Active Substance: CLONAZEPAM
  11. LAXATIVES [Concomitant]
     Active Substance: UNSPECIFIED INGREDIENT
  12. CYTOMEL [Concomitant]
     Active Substance: LIOTHYRONINE SODIUM
  13. VITAMIN D [Concomitant]
     Active Substance: CHOLECALCIFEROL
  14. PREDNISONE. [Concomitant]
     Active Substance: PREDNISONE
  15. STIMULANTS [Concomitant]
     Active Substance: UNSPECIFIED INGREDIENT

REACTIONS (14)
  - Withdrawal syndrome [None]
  - Skin discolouration [None]
  - Localised oedema [None]
  - Fatigue [None]
  - Myalgia [None]
  - Myositis [None]
  - Bursitis [None]
  - Oedema peripheral [None]
  - Intervertebral disc degeneration [None]
  - Musculoskeletal pain [None]
  - Sleep disorder [None]
  - Muscle rupture [None]
  - Neoplasm [None]
  - Peripheral swelling [None]

NARRATIVE: CASE EVENT DATE: 20160602
